FAERS Safety Report 15599246 (Version 1)
Quarter: 2018Q4

REPORT INFORMATION
  Report Type: Spontaneous
  Country: US (occurrence: US)
  Receive Date: 20181108
  Receipt Date: 20181108
  Transmission Date: 20190205
  Serious: No
  Sender: FDA-Public Use
  Company Number: US-PFIZER INC-2018449633

PATIENT
  Age: 78 Year
  Sex: Female
  Weight: 61.23 kg

DRUGS (1)
  1. GABAPENTIN. [Suspect]
     Active Substance: GABAPENTIN
     Indication: NEURALGIA
     Dosage: UNK, 3X/DAY (1-3 CAPSULES BY MOUTH THREE TIMES A DAY)
     Route: 048
     Dates: end: 201704

REACTIONS (3)
  - Fatigue [Recovered/Resolved]
  - Drug ineffective for unapproved indication [Unknown]
  - Somnolence [Recovered/Resolved]
